FAERS Safety Report 14220911 (Version 1)
Quarter: 2017Q4

REPORT INFORMATION
  Report Type: Spontaneous
  Country: US (occurrence: US)
  Receive Date: 20171124
  Receipt Date: 20171124
  Transmission Date: 20180321
  Serious: No
  Sender: FDA-Public Use
  Company Number: US-009507513-1711USA010294

PATIENT
  Age: 11 Year
  Sex: Male

DRUGS (4)
  1. ACETAZOLAMIDE. [Concomitant]
     Active Substance: ACETAZOLAMIDE
     Indication: RETINAL DYSTROPHY
     Dosage: 7?15 MG/KG/DAY AS A SINGLE MORNING DOSE UP TO A MAXIMUM 500 MG
     Route: 048
  2. ACETAZOLAMIDE. [Concomitant]
     Active Substance: ACETAZOLAMIDE
     Indication: MACULAR CYST
  3. TRUSOPT [Suspect]
     Active Substance: DORZOLAMIDE HYDROCHLORIDE
     Indication: RETINAL DYSTROPHY
     Dosage: UNK UNK, BID
     Route: 047
  4. TRUSOPT [Suspect]
     Active Substance: DORZOLAMIDE HYDROCHLORIDE
     Indication: MACULAR CYST

REACTIONS (1)
  - Off label use [Unknown]
